FAERS Safety Report 5937562-9 (Version None)
Quarter: 2008Q4

REPORT INFORMATION
  Report Type: 
  Country: None (occurrence: None)
  Receive Date: 20081031
  Receipt Date: 20081023
  Transmission Date: 20090506
  Serious: Yes (Hospitalization)
  Sender: FDA-Public Use
  Company Number: SE-JNJFOC-20081005526

PATIENT
  Sex: Male
  Weight: 70 kg

DRUGS (5)
  1. REMICADE [Suspect]
     Indication: COLITIS ULCERATIVE
     Route: 042
  2. CALICHEW [Concomitant]
     Indication: OSTEOPOROSIS PROPHYLAXIS
     Dosage: 500/400 MG TWICE A DAY
     Route: 048
  3. MESASAL [Concomitant]
     Route: 054
  4. OMEPRAZOLE [Concomitant]
     Indication: DYSPEPSIA
     Route: 048
  5. PRIMPERAN [Concomitant]
     Indication: NAUSEA
     Route: 048

REACTIONS (3)
  - ARTHRITIS BACTERIAL [None]
  - ARTHROPATHY [None]
  - COLITIS ULCERATIVE [None]
